FAERS Safety Report 15418490 (Version 1)
Quarter: 2018Q3

REPORT INFORMATION
  Report Type: Spontaneous
  Country: US (occurrence: US)
  Receive Date: 20180924
  Receipt Date: 20180924
  Transmission Date: 20181010
  Serious: No
  Sender: FDA-Public Use
  Company Number: US-SA-2018SA261997

PATIENT
  Sex: Male

DRUGS (17)
  1. FLUTICASONE. [Concomitant]
     Active Substance: FLUTICASONE
  2. LEVOTHYROXIN [Concomitant]
     Active Substance: LEVOTHYROXINE
  3. FLUVIRIN [INFLUENZA VACCINE INACT SAG 3V] [Concomitant]
  4. AUBAGIO [Suspect]
     Active Substance: TERIFLUNOMIDE
     Dosage: 1 DF, QD
     Route: 048
     Dates: start: 20180803
  5. AMANTADINE. [Concomitant]
     Active Substance: AMANTADINE HYDROCHLORIDE
  6. BUPROPION HYDROCHLORIDE XL [Concomitant]
     Active Substance: BUPROPION HYDROCHLORIDE
  7. HYOSCYAMINE. [Concomitant]
     Active Substance: HYOSCYAMINE
  8. BENZONATATE. [Concomitant]
     Active Substance: BENZONATATE
  9. AMITRIPTINE [Concomitant]
     Active Substance: AMITRIPTYLINE
  10. GABAPENTIN. [Concomitant]
     Active Substance: GABAPENTIN
  11. ASPIRIN [ACETYLSALICYLIC ACID] [Concomitant]
     Active Substance: ASPIRIN
  12. FAMOTIDINE. [Concomitant]
     Active Substance: FAMOTIDINE
  13. OMEPRAZOLE. [Concomitant]
     Active Substance: OMEPRAZOLE
  14. IBUPROFEN. [Concomitant]
     Active Substance: IBUPROFEN
  15. RAPAFLO [Concomitant]
     Active Substance: SILODOSIN
  16. CARBIDOPA/LEVODOPA [Concomitant]
     Active Substance: CARBIDOPA\LEVODOPA
  17. PNEUMOVAX 23 [Concomitant]
     Active Substance: PNEUMOCOCCAL VACCINE, POLYVALENT 23

REACTIONS (1)
  - Visual impairment [Not Recovered/Not Resolved]
